FAERS Safety Report 10005850 (Version 3)
Quarter: 2014Q2

REPORT INFORMATION
  Report Type: Spontaneous
  Country: US (occurrence: US)
  Receive Date: 20140313
  Receipt Date: 20140422
  Transmission Date: 20141212
  Serious: Yes (Life-Threatening, Hospitalization)
  Sender: FDA-Public Use
  Company Number: US-JNJFOC-20140305305

PATIENT
  Age: 3 Year
  Sex: Male
  Weight: 13.15 kg

DRUGS (1)
  1. VISINE ORIGINAL [Suspect]
     Indication: ACCIDENTAL EXPOSURE TO PRODUCT
     Dosage: ABOUT 10CC
     Route: 048
     Dates: start: 20140305, end: 20140305

REACTIONS (5)
  - Accidental exposure to product by child [Unknown]
  - Somnolence [Recovering/Resolving]
  - Heart rate decreased [Recovering/Resolving]
  - Unresponsive to stimuli [Recovering/Resolving]
  - Product packaging issue [Unknown]
